FAERS Safety Report 8598845-X (Version None)
Quarter: 2012Q3

REPORT INFORMATION
  Report Type: 
  Country: None (occurrence: None)
  Receive Date: 20120816
  Receipt Date: 20120705
  Transmission Date: 20120928
  Serious: Yes (Other)
  Sender: FDA-Public Use
  Company Number: GB-GLAXOSMITHKLINE-B0822232A

PATIENT
  Sex: Male

DRUGS (11)
  1. OXYCODONE HYDROCHLORIDE [Concomitant]
     Dosage: 5MG THREE TIMES PER DAY
  2. MEBEVERINE [Concomitant]
     Dosage: 135MG THREE TIMES PER DAY
  3. OXYCONTIN [Concomitant]
     Dosage: 30MG TWICE PER DAY
  4. AMITRIPTYLINE HCL [Concomitant]
     Dosage: 50MG PER DAY
  5. NAPROXEN [Concomitant]
     Dosage: 500MG TWICE PER DAY
  6. POTIGA [Suspect]
     Indication: PARTIAL SEIZURES
     Dosage: 50MG AT NIGHT
     Route: 048
     Dates: start: 20120629, end: 20120703
  7. LACOSAMIDE [Concomitant]
     Dosage: 200MG TWICE PER DAY
  8. BECONASE [Concomitant]
     Route: 045
  9. LORATADINE [Concomitant]
     Dosage: 10MG PER DAY
  10. LAXIDO [Concomitant]
     Dosage: 3SAC PER DAY
  11. LAMICTAL [Concomitant]
     Dosage: 300MG TWICE PER DAY

REACTIONS (5)
  - URINARY TRACT INFECTION BACTERIAL [None]
  - PRODUCT QUALITY ISSUE [None]
  - HAEMATURIA [None]
  - URETHRAL DISCHARGE [None]
  - URINARY RETENTION [None]
